FAERS Safety Report 5929972-0 (Version None)
Quarter: 2008Q4

REPORT INFORMATION
  Report Type: 
  Country: None (occurrence: None)
  Receive Date: 20081024
  Receipt Date: 20081010
  Transmission Date: 20090506
  Serious: Yes (Other)
  Sender: FDA-Public Use
  Company Number: GB-PFIZER INC-2008079107

PATIENT
  Sex: Female

DRUGS (1)
  1. XALATAN [Suspect]
     Dates: start: 20080101

REACTIONS (2)
  - DYSPNOEA [None]
  - MACULAR DEGENERATION [None]
